FAERS Safety Report 9311244 (Version 3)
Quarter: 2013Q3

REPORT INFORMATION
  Report Type: Spontaneous
  Country: IT (occurrence: IT)
  Receive Date: 20130528
  Receipt Date: 20130802
  Transmission Date: 20140515
  Serious: Yes (Other)
  Sender: FDA-Public Use
  Company Number: IT-009507513-1305ITA015395

PATIENT
  Age: 45 Year
  Sex: Male
  Weight: 60 kg

DRUGS (5)
  1. REMERON [Suspect]
     Dosage: 26 TABLETS, QD
     Route: 048
     Dates: start: 20130425, end: 20130425
  2. INVEGA [Suspect]
     Dosage: UNK, UNK
     Route: 048
     Dates: start: 20130425, end: 20130425
  3. SEROQUEL [Suspect]
     Dosage: 52 TABLETS, QD
     Route: 048
     Dates: start: 20130425, end: 20130425
  4. CYMBALTA [Suspect]
     Dosage: UNK
     Route: 048
     Dates: start: 20130425, end: 20130425
  5. FELISON [Suspect]
     Dosage: UNK
     Dates: start: 20130425

REACTIONS (2)
  - Intentional self-injury [Unknown]
  - Drug abuse [Unknown]
